FAERS Safety Report 7963339-9 (Version None)
Quarter: 2011Q4

REPORT INFORMATION
  Report Type: 
  Country: None (occurrence: None)
  Receive Date: 20111122
  Receipt Date: 20110721
  Transmission Date: 20120403
  Serious: No
  Sender: FDA-Public Use
  Company Number: PHHY2011US67653

PATIENT

DRUGS (1)
  1. GILENYA [Suspect]

REACTIONS (2)
  - ASTHENIA [None]
  - FATIGUE [None]
